FAERS Safety Report 8525696 (Version 3)
Quarter: 2012Q4

REPORT INFORMATION
  Report Type: Report from Study
  Country: DE (occurrence: DE)
  Receive Date: 20120423
  Receipt Date: 20120830
  Transmission Date: 20130627
  Serious: Yes (Hospitalization)
  Sender: FDA-Public Use
  Company Number: DE-VIIV HEALTHCARE LIMITED-B0796766A

PATIENT
  Age: 45 Year
  Sex: Male
  Weight: 66 kg

DRUGS (4)
  1. MARAVIROC [Suspect]
     Indication: HIV INFECTION
     Dosage: 300MG Twice per day
     Route: 048
     Dates: start: 20091112
  2. RAMIPRIL [Suspect]
     Dosage: 10MG per day
     Dates: start: 20100216
  3. CANDESARTAN [Concomitant]
     Dosage: 8MG per day
     Dates: start: 20110414
  4. HYDROCHLOROTHIAZIDE [Concomitant]
     Dosage: 125MG per day
     Dates: start: 20120113

REACTIONS (1)
  - Myocardial infarction [Recovered/Resolved]
